FAERS Safety Report 23419959 (Version 8)
Quarter: 2024Q4

REPORT INFORMATION
  Report Type: Report from Study
  Country: CO (occurrence: CO)
  Receive Date: 20240119
  Receipt Date: 20241213
  Transmission Date: 20250115
  Serious: Yes (Other)
  Sender: GLAXOSMITHKLINE
  Company Number: CO-GLAXOSMITHKLINE-CO2023AMR116676

PATIENT

DRUGS (2)
  1. BELIMUMAB [Suspect]
     Active Substance: BELIMUMAB
     Indication: Systemic lupus erythematosus
     Dosage: 640 MG, Q4W
     Route: 042
     Dates: start: 20200316
  2. BELIMUMAB [Suspect]
     Active Substance: BELIMUMAB
     Dosage: 640 MG, MO
     Route: 042

REACTIONS (17)
  - Small intestinal obstruction [Unknown]
  - Laparotomy [Not Recovered/Not Resolved]
  - Hysterectomy [Recovered/Resolved]
  - Tumour marker increased [Unknown]
  - Uterine mass [Unknown]
  - Abdominal pain [Not Recovered/Not Resolved]
  - Wound secretion [Not Recovered/Not Resolved]
  - Neoplasm [Not Recovered/Not Resolved]
  - Dizziness [Not Recovered/Not Resolved]
  - Haemoglobin decreased [Not Recovered/Not Resolved]
  - Viral diarrhoea [Recovered/Resolved]
  - Anaemia [Recovered/Resolved]
  - Tooth fracture [Not Recovered/Not Resolved]
  - Headache [Not Recovered/Not Resolved]
  - Blood pressure increased [Not Recovered/Not Resolved]
  - Back pain [Not Recovered/Not Resolved]
  - Pain in extremity [Not Recovered/Not Resolved]

NARRATIVE: CASE EVENT DATE: 20231201
